FAERS Safety Report 5234856-X (Version None)
Quarter: 2007Q1

REPORT INFORMATION
  Report Type: 
  Country: None (occurrence: None)
  Receive Date: 20070209
  Receipt Date: 20070130
  Transmission Date: 20070707
  Serious: Yes (Hospitalization, Other)
  Sender: FDA-Public Use
  Company Number: US-PFIZER INC-2007008030

PATIENT
  Sex: Male
  Weight: 88.5 kg

DRUGS (5)
  1. CADUET [Suspect]
     Indication: BLOOD CHOLESTEROL INCREASED
     Dosage: TEXT:5MG/20MG
  2. CADUET [Suspect]
     Indication: HYPERTENSION
  3. ALL OTHER THERAPEUTIC PRODUCTS [Concomitant]
  4. VITAMINS [Concomitant]
  5. OMEGA-3 [Concomitant]

REACTIONS (6)
  - ANXIETY [None]
  - COLD SWEAT [None]
  - DYSPNOEA [None]
  - HYPERHIDROSIS [None]
  - PANIC ATTACK [None]
  - SLEEP APNOEA SYNDROME [None]
